FAERS Safety Report 25662049 (Version 1)
Quarter: 2025Q3

REPORT INFORMATION
  Report Type: Spontaneous
  Country: CN (occurrence: CN)
  Receive Date: 20250810
  Receipt Date: 20250810
  Transmission Date: 20251020
  Serious: Yes (Hospitalization)
  Sender: ALEXION PHARMACEUTICALS
  Company Number: CN-ASTRAZENECA-202411CHN019220CN

PATIENT
  Age: 84 Year
  Sex: Male
  Weight: 66.9 kg

DRUGS (4)
  1. TAGRISSO [Suspect]
     Active Substance: OSIMERTINIB
     Indication: Lung neoplasm malignant
     Dosage: 80 MILLIGRAM, BID
     Dates: start: 20240105, end: 20241107
  2. TAGRISSO [Suspect]
     Active Substance: OSIMERTINIB
  3. SAVOLITINIB [Suspect]
     Active Substance: SAVOLITINIB
     Indication: Lung neoplasm malignant
     Dosage: 100 MILLIGRAM, QD
     Dates: start: 202405, end: 20241107
  4. SAVOLITINIB [Suspect]
     Active Substance: SAVOLITINIB
     Dosage: 100 MILLIGRAM, QD
     Dates: start: 20241114

REACTIONS (2)
  - Oedema peripheral [Recovering/Resolving]
  - Oedema peripheral [Recovering/Resolving]

NARRATIVE: CASE EVENT DATE: 20241118
